FAERS Safety Report 7336453-9 (Version None)
Quarter: 2011Q1

REPORT INFORMATION
  Report Type: 
  Country: None (occurrence: None)
  Receive Date: 20110307
  Receipt Date: 20110221
  Transmission Date: 20110831
  Serious: No
  Sender: FDA-Public Use
  Company Number: US-B.I. PHARMACEUTICALS,INC./RIDGEFIELD-2011-BP-06234BP

PATIENT
  Sex: Male

DRUGS (3)
  1. PRADAXA [Suspect]
     Indication: ATRIAL FIBRILLATION
     Dosage: 300 MG
     Route: 048
     Dates: start: 20101201
  2. TOPROL-XL [Concomitant]
     Indication: HYPERTENSION
  3. VERAPMIL [Concomitant]
     Indication: HYPERTENSION

REACTIONS (2)
  - HYPOTENSION [None]
  - DIABETES MELLITUS [None]
